FAERS Safety Report 7883190-8 (Version None)
Quarter: 2011Q4

REPORT INFORMATION
  Report Type: 
  Country: None (occurrence: None)
  Receive Date: 20111101
  Receipt Date: 20111101
  Transmission Date: 20120403
  Serious: Yes (Hospitalization)
  Sender: FDA-Public Use
  Company Number: None

PATIENT
  Age: 54 Year
  Sex: Male
  Weight: 83.4 kg

DRUGS (1)
  1. CARBAMAZEPINE [Suspect]
     Indication: BIPOLAR I DISORDER
     Dosage: 400 MG BID PO
     Route: 048
     Dates: start: 20110824, end: 20110909

REACTIONS (6)
  - DERMATITIS EXFOLIATIVE [None]
  - THROMBOCYTOPENIA [None]
  - RASH [None]
  - PYREXIA [None]
  - CHILLS [None]
  - HYPERSENSITIVITY [None]
